FAERS Safety Report 6028471-8 (Version None)
Quarter: 2009Q1

REPORT INFORMATION
  Report Type: 
  Country: None (occurrence: None)
  Receive Date: 20090106
  Receipt Date: 20081230
  Transmission Date: 20090719
  Serious: Yes (Hospitalization, Other)
  Sender: FDA-Public Use
  Company Number: DE-ABBOTT-08P-062-0483275-00

PATIENT
  Sex: Female
  Weight: 61 kg

DRUGS (3)
  1. HUMIRA [Suspect]
     Indication: PSORIATIC ARTHROPATHY
     Route: 058
     Dates: start: 20060101, end: 20080924
  2. CORTISONE ACETATE TAB [Concomitant]
     Indication: PSORIATIC ARTHROPATHY
  3. PREDNISOLONE [Concomitant]
     Indication: PSORIATIC ARTHROPATHY
     Route: 048

REACTIONS (2)
  - CERVIX CARCINOMA [None]
  - PROCEDURAL PAIN [None]
